FAERS Safety Report 25061362 (Version 4)
Quarter: 2025Q4

REPORT INFORMATION
  Report Type: Report from Study
  Country: EU (occurrence: EU)
  Receive Date: 20250311
  Receipt Date: 20251031
  Transmission Date: 20260118
  Serious: Yes (Hospitalization)
  Sender: ABBVIE
  Company Number: EU-ABBVIE-6166580

PATIENT
  Age: 66 Year
  Sex: Male

DRUGS (12)
  1. CARBIDOPA\LEVODOPA [Suspect]
     Active Substance: CARBIDOPA\LEVODOPA
     Indication: Parkinson^s disease
     Dosage: 1 CASSETTE
     Route: 050
     Dates: start: 20170516
  2. CARBIDOPA\LEVODOPA [Suspect]
     Active Substance: CARBIDOPA\LEVODOPA
     Dosage: 1 CASSETTE
     Route: 050
     Dates: start: 20250303, end: 20250303
  3. CARBIDOPA\LEVODOPA [Suspect]
     Active Substance: CARBIDOPA\LEVODOPA
     Dosage: 1 CASSETTE?LAST ADMIN DATE: 2025
     Route: 050
     Dates: start: 20250307
  4. CARBIDOPA\LEVODOPA [Suspect]
     Active Substance: CARBIDOPA\LEVODOPA
     Dosage: 1 CASSETTE
     Route: 050
     Dates: start: 20251024
  5. RIVOTRIL [Concomitant]
     Active Substance: CLONAZEPAM
     Indication: Product used for unknown indication
     Dosage: NIGHT
  6. PANADOL [Concomitant]
     Active Substance: ACETAMINOPHEN
     Indication: Product used for unknown indication
  7. MOVICOL [Concomitant]
     Active Substance: POLYETHYLENE GLYCOL 3350\POTASSIUM CHLORIDE\SODIUM BICARBONATE\SODIUM CHLORIDE
     Indication: Product used for unknown indication
  8. CARBIDOPA\LEVODOPA [Concomitant]
     Active Substance: CARBIDOPA\LEVODOPA
     Indication: Product used for unknown indication
     Dosage: 12.5/50MG ONE AT NIGHT?25/100MG PRIOR TO PUMP ADMINISTRATION IN THE MORNING
  9. BENSERAZIDE HYDROCHLORIDE\LEVODOPA [Concomitant]
     Active Substance: BENSERAZIDE HYDROCHLORIDE\LEVODOPA
     Indication: Product used for unknown indication
     Dosage: NIGHT?50/12.5MG
  10. CHOLECALCIFEROL [Concomitant]
     Active Substance: CHOLECALCIFEROL
     Indication: Product used for unknown indication
     Dosage: 800 UNITS
  11. PREGABALIN [Concomitant]
     Active Substance: PREGABALIN
     Indication: Product used for unknown indication
     Dosage: TIME INTERVAL: 0.33333333 DAYS
  12. IBUPROFEN [Concomitant]
     Active Substance: IBUPROFEN
     Indication: Product used for unknown indication
     Dosage: TIME INTERVAL: AS NECESSARY

REACTIONS (9)
  - Urinary retention [Recovering/Resolving]
  - Mobility decreased [Unknown]
  - Constipation [Recovering/Resolving]
  - Dyskinesia [Not Recovered/Not Resolved]
  - Infection [Recovering/Resolving]
  - Abdominal pain [Recovered/Resolved]
  - Urinary tract infection [Unknown]
  - Weight decreased [Recovering/Resolving]
  - Gastrointestinal motility disorder [Unknown]

NARRATIVE: CASE EVENT DATE: 20250101
